FAERS Safety Report 17403447 (Version 2)
Quarter: 2020Q2

REPORT INFORMATION
  Report Type: Spontaneous
  Country: US (occurrence: US)
  Receive Date: 20200211
  Receipt Date: 20200518
  Transmission Date: 20200713
  Serious: No
  Sender: FDA-Public Use
  Company Number: US-JNJFOC-20200202175

PATIENT
  Age: 63 Year
  Sex: Female
  Weight: 83.99 kg

DRUGS (2)
  1. TREMFYA [Suspect]
     Active Substance: GUSELKUMAB
     Indication: PSORIASIS
     Route: 058
     Dates: start: 201809
  2. TREMFYA [Suspect]
     Active Substance: GUSELKUMAB

REACTIONS (3)
  - Wrong technique in product usage process [Unknown]
  - Nasopharyngitis [Unknown]
  - Medication error [Unknown]

NARRATIVE: CASE EVENT DATE: 201902
